FAERS Safety Report 6708040-4 (Version None)
Quarter: 2010Q2

REPORT INFORMATION
  Report Type: 
  Country: None (occurrence: None)
  Receive Date: 20100503
  Receipt Date: 20091103
  Transmission Date: 20101027
  Serious: Yes (Other)
  Sender: FDA-Public Use
  Company Number: US-BAYER-200934634NA

PATIENT
  Age: 63 Year
  Sex: Female

DRUGS (8)
  1. BETASERON [Suspect]
     Indication: PRIMARY PROGRESSIVE MULTIPLE SCLEROSIS
     Dosage: AS USED: 8 MIU
     Route: 058
     Dates: start: 20090901
  2. BETASERON [Suspect]
     Dosage: TOTAL DAILY DOSE: 6 MIU
     Route: 058
     Dates: start: 20090901, end: 20091005
  3. BETASERON [Suspect]
     Route: 058
     Dates: start: 20090701
  4. XANAX [Concomitant]
  5. DARVOCET [Concomitant]
  6. IBUPROFEN [Concomitant]
  7. PRILOSEC [Concomitant]
  8. SLEEPING PILL [Concomitant]
     Dates: start: 20090927

REACTIONS (8)
  - COGNITIVE DISORDER [None]
  - DYSKINESIA [None]
  - GAIT DISTURBANCE [None]
  - HEADACHE [None]
  - MEMORY IMPAIRMENT [None]
  - MYALGIA [None]
  - SPEECH DISORDER [None]
  - TONGUE DISORDER [None]
